FAERS Safety Report 4691737-8 (Version None)
Quarter: 2005Q2

REPORT INFORMATION
  Report Type: 
  Country: None (occurrence: None)
  Receive Date: 20050616
  Receipt Date: 20050603
  Transmission Date: 20051028
  Serious: Yes (Hospitalization)
  Sender: FDA-Public Use
  Company Number: US-BRISTOL-MYERS SQUIBB COMPANY-12992947

PATIENT

DRUGS (8)
  1. COUMADIN [Suspect]
     Indication: MITRAL VALVE REPAIR
     Dates: start: 20050322
  2. COUMADIN [Suspect]
     Indication: DRUG SPECIFIC ANTIBODY PRESENT
     Dates: start: 20050322
  3. BIVALIRUDIN [Concomitant]
     Route: 040
     Dates: start: 20050317, end: 20050317
  4. ASPIRIN [Concomitant]
  5. FUROSEMIDE [Concomitant]
  6. POTASSIUM CHLORIDE [Concomitant]
  7. ENALAPRIL MALEATE [Concomitant]
  8. ESOMEPRAZOLE [Concomitant]

REACTIONS (2)
  - PLEURAL EFFUSION [None]
  - SYNCOPE [None]
